FAERS Safety Report 17855482 (Version 1)
Quarter: 2020Q2

REPORT INFORMATION
  Report Type: Spontaneous
  Country: US (occurrence: US)
  Receive Date: 20200603
  Receipt Date: 20200603
  Transmission Date: 20200714
  Serious: No
  Sender: FDA-Public Use
  Company Number: US-EMD SERONO-9166039

PATIENT
  Age: 43 Year
  Sex: Male

DRUGS (1)
  1. SEROSTIM [Suspect]
     Active Substance: SOMATROPIN
     Indication: LIPODYSTROPHY ACQUIRED
     Route: 058
     Dates: start: 20191104

REACTIONS (7)
  - Pruritus [Unknown]
  - Road traffic accident [Unknown]
  - Limb injury [Unknown]
  - Insomnia [Unknown]
  - Musculoskeletal pain [Recovering/Resolving]
  - Fatigue [Unknown]
  - Head injury [Unknown]

NARRATIVE: CASE EVENT DATE: 20200407
